FAERS Safety Report 9500731 (Version 1)
Quarter: 2013Q1

REPORT INFORMATION
  Report Type: Spontaneous
  Country: US (occurrence: None)
  Receive Date: 20130107
  Receipt Date: 20130107
  Transmission Date: 20140127
  Serious: No
  Sender: FDA-Public Use
  Company Number: PHEH2012US020446

PATIENT
  Age: 57 Year
  Sex: Female

DRUGS (1)
  1. GILENYA  (FINGOLIMOD) [Suspect]
     Indication: MULTIPLE SCLEROSIS
     Route: 048
     Dates: start: 20121016

REACTIONS (2)
  - Nausea [None]
  - Fatigue [None]
